FAERS Safety Report 7688474-4 (Version None)
Quarter: 2011Q3

REPORT INFORMATION
  Report Type: 
  Country: None (occurrence: None)
  Receive Date: 20110817
  Receipt Date: 20110810
  Transmission Date: 20111222
  Serious: Yes (Other)
  Sender: FDA-Public Use
  Company Number: BR-ROCHE-796414

PATIENT
  Sex: Female
  Weight: 59 kg

DRUGS (2)
  1. LIPLESS [Concomitant]
     Indication: BLOOD CHOLESTEROL ABNORMAL
     Dates: end: 20110501
  2. CLONAZEPAM [Suspect]
     Dosage: INDICATION: LEGS PAIN AND INSOMNIA  FREQUENCY: 3 OR 4 DROPS / DAY
     Route: 065
     Dates: start: 20090101, end: 20110726

REACTIONS (4)
  - ASTHENIA [None]
  - MUSCULAR WEAKNESS [None]
  - SYNCOPE [None]
  - DYSPHONIA [None]
